FAERS Safety Report 18363414 (Version 3)
Quarter: 2020Q4

REPORT INFORMATION
  Report Type: Spontaneous
  Country: US (occurrence: US)
  Receive Date: 20201009
  Receipt Date: 20201119
  Transmission Date: 20210114
  Serious: No
  Sender: FDA-Public Use
  Company Number: US-TEVA-2020-US-1837596

PATIENT
  Sex: Female

DRUGS (5)
  1. CELECOXIB. [Suspect]
     Active Substance: CELECOXIB
     Route: 065
  2. ELIQUIS [Concomitant]
     Active Substance: APIXABAN
  3. DICLOFENAC [Suspect]
     Active Substance: DICLOFENAC
     Route: 065
  4. ASPIRIN. [Concomitant]
     Active Substance: ASPIRIN
     Dosage: DAILY
  5. VIOXX [Suspect]
     Active Substance: ROFECOXIB
     Route: 065

REACTIONS (2)
  - Drug ineffective [Unknown]
  - Product substitution issue [Unknown]
